FAERS Safety Report 4845185-8 (Version None)
Quarter: 2005Q4

REPORT INFORMATION
  Report Type: 
  Country: None (occurrence: None)
  Receive Date: 20051205
  Receipt Date: 20050926
  Transmission Date: 20060501
  Serious: Yes (Life-Threatening, Hospitalization)
  Sender: FDA-Public Use
  Company Number: GB-ROCHE-419207

PATIENT
  Age: 14 Year
  Sex: Male
  Weight: 60 kg

DRUGS (2)
  1. ROACCUTANE [Suspect]
     Indication: ACNE
     Route: 048
     Dates: start: 20040407, end: 20040615
  2. ROACCUTANE [Suspect]
     Route: 048
     Dates: start: 20040714, end: 20040904

REACTIONS (3)
  - ACUTE ABDOMEN [None]
  - HEREDITARY ANGIOEDEMA [None]
  - INTESTINAL GANGRENE [None]
